FAERS Safety Report 7266867-7 (Version None)
Quarter: 2011Q1

REPORT INFORMATION
  Report Type: 
  Country: None (occurrence: None)
  Receive Date: 20110120
  Receipt Date: 20110105
  Transmission Date: 20110831
  Serious: Yes (Hospitalization)
  Sender: FDA-Public Use
  Company Number: 003576

PATIENT
  Sex: Female

DRUGS (19)
  1. METHOTREXATE [Concomitant]
  2. REBAMIPIDE [Concomitant]
  3. MOSAPRIDE [Concomitant]
  4. FOLIC ACID [Concomitant]
  5. KETOPROFEN [Concomitant]
  6. TIQUIZIUM BROMIDE [Concomitant]
  7. VALPROATE SODIUM [Concomitant]
  8. BETAMETHASONE [Concomitant]
  9. LOXOPROFEN SODIUM [Concomitant]
  10. CANDESARTAN CILEXETIL [Concomitant]
  11. CELECOXIB [Concomitant]
  12. PREDNISOLONE [Concomitant]
  13. ISONIAZID [Concomitant]
  14. CIMZIA [Suspect]
     Indication: RHEUMATOID ARTHRITIS
     Dosage: SUBCUTANEOUS, SUBCUTANEOUS
     Route: 058
     Dates: start: 20100722, end: 20100101
  15. CIMZIA [Suspect]
     Indication: RHEUMATOID ARTHRITIS
     Dosage: SUBCUTANEOUS, SUBCUTANEOUS
     Route: 058
     Dates: start: 20091001, end: 20100527
  16. SCOPOLAMINE [Concomitant]
  17. CANDSARTAN CILEXETIL [Concomitant]
  18. DICLOFENAC SODIUM [Concomitant]
  19. RABEPRAZOLE SODIUM [Concomitant]

REACTIONS (6)
  - MENINGIOMA [None]
  - INTRACRANIAL ANEURYSM [None]
  - BACK PAIN [None]
  - CONTUSION [None]
  - SWELLING FACE [None]
  - FALL [None]
